FAERS Safety Report 6395967-9 (Version None)
Quarter: 2009Q4

REPORT INFORMATION
  Report Type: 
  Country: None (occurrence: None)
  Receive Date: 20091009
  Receipt Date: 20091008
  Transmission Date: 20100525
  Serious: Yes (Death, Hospitalization)
  Sender: FDA-Public Use
  Company Number: PHHY2009MY43314

PATIENT
  Age: 39 Year
  Sex: Female

DRUGS (1)
  1. GLEEVEC [Suspect]
     Route: 048

REACTIONS (1)
  - DEATH [None]
